FAERS Safety Report 9448215 (Version 2)
Quarter: 2013Q3

REPORT INFORMATION
  Report Type: Report from Study
  Country: DE (occurrence: DE)
  Receive Date: 20130808
  Receipt Date: 20130903
  Transmission Date: 20140515
  Serious: Yes (Hospitalization)
  Sender: FDA-Public Use
  Company Number: DE-INCYTE CORPORATION-2013IN001752

PATIENT
  Sex: Male
  Weight: 76 kg

DRUGS (1)
  1. INCB018424 [Suspect]
     Indication: MYELOFIBROSIS
     Dosage: 15 MG, BID
     Route: 048
     Dates: start: 20130722

REACTIONS (1)
  - Diabetes mellitus [Recovered/Resolved]
